FAERS Safety Report 8301704-0 (Version None)
Quarter: 2012Q2

REPORT INFORMATION
  Report Type: 
  Country: None (occurrence: None)
  Receive Date: 20120420
  Receipt Date: 20120413
  Transmission Date: 20120825
  Serious: Yes (Death)
  Sender: FDA-Public Use
  Company Number: US-CELGENEUS-163-21880-12041856

PATIENT
  Sex: Female
  Weight: 68.1 kg

DRUGS (8)
  1. ZOFRAN [Concomitant]
     Dosage: 8 MILLIGRAM
     Route: 065
  2. FLUCONAZOLE [Concomitant]
     Dosage: 100 MILLIGRAM
     Route: 065
  3. FOLIC ACID [Concomitant]
     Dosage: 1 MILLIGRAM
     Route: 065
  4. METOPROLOL TARTRATE [Concomitant]
     Dosage: 50 MILLIGRAM
     Route: 065
  5. VALACYCLOVIR [Concomitant]
     Dosage: 500 MILLIGRAM
     Route: 065
  6. LISINOPRIL [Concomitant]
     Dosage: 10 MILLIGRAM
     Route: 065
  7. REVLIMID [Suspect]
     Dosage: 10 MILLIGRAM
     Route: 048
     Dates: start: 20120308, end: 20120417
  8. PANTOPRAZOLE [Concomitant]
     Dosage: 40 MILLIGRAM
     Route: 065

REACTIONS (1)
  - DEATH [None]
